FAERS Safety Report 19968117 (Version 2)
Quarter: 2021Q4

REPORT INFORMATION
  Report Type: Spontaneous
  Country: US (occurrence: US)
  Receive Date: 20211019
  Receipt Date: 20211213
  Transmission Date: 20220303
  Serious: No
  Sender: FDA-Public Use
  Company Number: US-SAGE-2021SAGE000096

PATIENT
  Age: 35 Year
  Sex: Female

DRUGS (1)
  1. ZULRESSO [Suspect]
     Active Substance: BREXANOLONE
     Indication: Perinatal depression
     Dosage: UNK
     Route: 042
     Dates: start: 20210927, end: 20210930

REACTIONS (2)
  - Perinatal depression [Recovering/Resolving]
  - Therapeutic product effect delayed [Recovered/Resolved]

NARRATIVE: CASE EVENT DATE: 20210901
